FAERS Safety Report 7462262-6 (Version None)
Quarter: 2011Q2

REPORT INFORMATION
  Report Type: 
  Country: None (occurrence: None)
  Receive Date: 20110506
  Receipt Date: 20110429
  Transmission Date: 20111010
  Serious: No
  Sender: FDA-Public Use
  Company Number: BO-SANOFI-AVENTIS-2011SA027507

PATIENT
  Age: 27 Year
  Sex: Female

DRUGS (1)
  1. ARAVA [Suspect]
     Indication: RHEUMATOID ARTHRITIS
     Dosage: THERAPY START DATE: FIRST WEEK OF MARC 2011 AND THERAPY END DATE: FOURTH WEEK OF MARCH 2011
     Route: 048
     Dates: start: 20110301, end: 20110301

REACTIONS (1)
  - DRUG EXPOSURE DURING PREGNANCY [None]
